FAERS Safety Report 20031009 (Version 1)
Quarter: 2021Q4

REPORT INFORMATION
  Report Type: Spontaneous
  Country: GB (occurrence: GB)
  Receive Date: 20211103
  Receipt Date: 20211103
  Transmission Date: 20220303
  Serious: Yes (Other)
  Sender: FDA-Public Use
  Company Number: None

PATIENT
  Age: 77 Year
  Sex: Female
  Weight: 75 kg

DRUGS (21)
  1. MIRTAZAPINE [Suspect]
     Active Substance: MIRTAZAPINE
     Indication: Product used for unknown indication
     Dosage: 15 MILLIGRAM, QD, AT BEDTIME
     Route: 048
     Dates: start: 20210607
  2. APIXABAN [Concomitant]
     Active Substance: APIXABAN
     Dosage: 1 DOSAGE FORM
     Dates: start: 20211018
  3. ASPIRIN                            /00002701/ [Concomitant]
     Dosage: 1 DOSAGE FORM, QD
     Dates: start: 20201106
  4. BUTYLSCOPOLAMINE BROMIDE [Concomitant]
     Active Substance: BUTYLSCOPOLAMINE BROMIDE
     Dosage: 2 DOSAGE FORM, QID
     Dates: start: 20210810, end: 20210817
  5. CO-DYDRAMOL [Concomitant]
     Active Substance: ACETAMINOPHEN\DIHYDROCODEINE
     Dosage: ONE OR TWO TO BE TAKEN FOUR TIMES A DAY
     Dates: start: 20201106, end: 20211006
  6. FAMOTIDINE [Concomitant]
     Active Substance: FAMOTIDINE
     Dosage: 1 DOSAGE FORM, QD
     Dates: start: 20211006
  7. IBUPROFEN [Concomitant]
     Active Substance: IBUPROFEN
     Dosage: APPLY 3-4 TIMES/DAY
     Dates: start: 20201106, end: 20211006
  8. HYDROCORTISONE [Concomitant]
     Active Substance: HYDROCORTISONE
     Dosage: 1 DOSAGE FORM, BID
     Dates: start: 20211018
  9. POLYETHYLENE GLYCOL 3350\POTASSIUM CHLORIDE\SODIUM BICARBONATE\SODIUM [Concomitant]
     Active Substance: POLYETHYLENE GLYCOL 3350\POTASSIUM CHLORIDE\SODIUM BICARBONATE\SODIUM CHLORIDE
     Dosage: 1 DOSAGE FORM, TAKE THE CONTENTS OF ONE SACHET AS DIRECTED
     Dates: start: 20211018
  10. LEVETIRACETAM [Concomitant]
     Active Substance: LEVETIRACETAM
     Dosage: 1 DOSAGE FORM, BID
     Route: 048
     Dates: start: 20211006
  11. MORPHINE SULFATE [Concomitant]
     Active Substance: MORPHINE SULFATE
     Dosage: TAKE 2.5 TO 5 MLS UP TO EVERY SIX HOURS
     Dates: start: 20211018
  12. OMEPRAZOLE [Concomitant]
     Active Substance: OMEPRAZOLE
     Dosage: 1 DOSAGE FORM, BID
     Dates: start: 20201106, end: 20211006
  13. MORPHINE SULFATE [Concomitant]
     Active Substance: MORPHINE SULFATE
     Dosage: 5 MILLILITER, UP TO EVERY  6 HOURS
     Dates: start: 20211007, end: 20211008
  14. OXELTRA [Concomitant]
     Dosage: 1 DOSAGE FORM, BID
     Dates: start: 20211018
  15. OXYCODONE HYDROCHLORIDE [Concomitant]
     Active Substance: OXYCODONE HYDROCHLORIDE
     Dosage: 1 DOSAGE FORM
     Dates: start: 20211007
  16. PREGABALIN [Concomitant]
     Active Substance: PREGABALIN
     Dosage: 1 DOSAGE FORM, BID
     Dates: start: 20201106
  17. PROPRANOLOL [Concomitant]
     Active Substance: PROPRANOLOL HYDROCHLORIDE
     Dosage: 1 DOSAGE FORM, TID
     Dates: start: 20210607
  18. SENNA                              /00142201/ [Concomitant]
     Dosage: 2 DOSAGE FORM, QD, AT NIGHT
     Route: 048
     Dates: start: 20211006
  19. SERTRALINE [Concomitant]
     Active Substance: SERTRALINE HYDROCHLORIDE
     Dosage: 1 DOSAGE FORM, QD
     Dates: start: 20210917
  20. SIMVASTATIN [Concomitant]
     Active Substance: SIMVASTATIN
     Dosage: 1 DOSAGE FORM, QD, AT NIGHT
     Dates: start: 20201106
  21. TEMAZEPAM [Concomitant]
     Active Substance: TEMAZEPAM
     Dosage: 1 DOSAGE FORM, QD
     Dates: start: 20201106

REACTIONS (3)
  - Hyponatraemia [Recovered/Resolved]
  - Confusional state [Unknown]
  - Malaise [Unknown]
